FAERS Safety Report 21987423 (Version 1)
Quarter: 2023Q1

REPORT INFORMATION
  Report Type: Spontaneous
  Country: GB (occurrence: GB)
  Receive Date: 20230214
  Receipt Date: 20230214
  Transmission Date: 20230418
  Serious: No
  Sender: FDA-Public Use
  Company Number: None

PATIENT

DRUGS (7)
  1. CEPHALEXIN [Suspect]
     Active Substance: CEPHALEXIN
     Indication: Ill-defined disorder
     Dosage: UNK
     Route: 065
     Dates: start: 20010312
  2. BALNEUM [Concomitant]
     Indication: Product used for unknown indication
     Dosage: UNK (AS DIRECTED)
     Route: 065
     Dates: start: 19980209, end: 20211124
  3. GAVISCON [Concomitant]
     Active Substance: ALUMINUM HYDROXIDE\MAGNESIUM CARBONATE
     Indication: Product used for unknown indication
     Dosage: UNK (AS DIRECTED)
     Route: 065
     Dates: start: 19980209, end: 20211124
  4. KETOCONAZOLE [Concomitant]
     Active Substance: KETOCONAZOLE
     Indication: Product used for unknown indication
     Dosage: AS DIRECTED
     Route: 065
     Dates: start: 20040216, end: 20211124
  5. LANSOPRAZOLE [Concomitant]
     Active Substance: LANSOPRAZOLE
     Indication: Product used for unknown indication
     Dosage: UNK TAKE ONE ONCE DAILY WITH NAPROXEN OR IBUPROFEN
     Route: 065
     Dates: start: 20220121
  6. MEBEVERINE HYDROCHLORIDE [Concomitant]
     Active Substance: MEBEVERINE HYDROCHLORIDE
     Indication: Irritable bowel syndrome
     Dosage: UNK TAKE ONE 3 TIMES/DAY FOR IBS SYMPTOMS
     Route: 065
     Dates: start: 20220121
  7. NAPROXEN [Concomitant]
     Active Substance: NAPROXEN
     Indication: Product used for unknown indication
     Dosage: UNK ONE TO BE TAKEN TWICE A DAY AS REQUIRED - NOT T
     Route: 065
     Dates: start: 20200921, end: 20211124

REACTIONS (1)
  - Drug intolerance [Unknown]

NARRATIVE: CASE EVENT DATE: 20010312
